FAERS Safety Report 4463683-6 (Version None)
Quarter: 2004Q3

REPORT INFORMATION
  Report Type: 
  Country: None (occurrence: None)
  Receive Date: 20040929
  Receipt Date: 20040914
  Transmission Date: 20050211
  Serious: Yes (Hospitalization)
  Sender: FDA-Public Use
  Company Number: JP_040603513

PATIENT
  Age: 37 Year
  Sex: Male
  Weight: 65 kg

DRUGS (9)
  1. ZYPREXA [Suspect]
     Indication: SCHIZOPHRENIA
     Dosage: 10 MG/1 DAY
     Dates: start: 20040221
  2. HIRNAMIN (LEVOMEPROMAZINE) [Concomitant]
  3. FLUMEZIN (FLUPHENAZINE) [Concomitant]
  4. ROHIPNOL (FLUNITRAZEPAM) [Concomitant]
  5. AMOBAN (ZOPICLONE) [Concomitant]
  6. SELBEX (TEPRENONE) [Concomitant]
  7. MAGNESIUM OXIDE [Concomitant]
  8. PURSENNID [Concomitant]
  9. FAMOTIDINE [Concomitant]

REACTIONS (5)
  - ABNORMAL BEHAVIOUR [None]
  - CONDITION AGGRAVATED [None]
  - IRRITABILITY [None]
  - POLYDIPSIA [None]
  - PSYCHIATRIC SYMPTOM [None]
